FAERS Safety Report 15083205 (Version 1)
Quarter: 2018Q2

REPORT INFORMATION
  Report Type: Spontaneous
  Country: US (occurrence: US)
  Receive Date: 20180607
  Receipt Date: 20180607
  Transmission Date: 20180711
  Serious: No
  Sender: FDA-Public Use
  Company Number: None

PATIENT
  Age: 45 Year
  Sex: Male

DRUGS (2)
  1. ZORTRESS [Suspect]
     Active Substance: EVEROLIMUS
  2. ENVARSUS XR [Concomitant]
     Active Substance: TACROLIMUS

REACTIONS (2)
  - Drug dose omission [None]
  - Manufacturing product shipping issue [None]

NARRATIVE: CASE EVENT DATE: 20180306
